FAERS Safety Report 10725576 (Version 2)
Quarter: 2015Q1

REPORT INFORMATION
  Report Type: Report from Study
  Country: DE (occurrence: DE)
  Receive Date: 20150121
  Receipt Date: 20150211
  Transmission Date: 20150721
  Serious: Yes (Hospitalization)
  Sender: FDA-Public Use
  Company Number: DE-ROCHE-1523389

PATIENT
  Age: 49 Year
  Sex: Female
  Weight: 58 kg

DRUGS (8)
  1. MONO-EMBOLEX [Concomitant]
     Active Substance: CERTOPARIN SODIUM
     Indication: THROMBOSIS
     Dosage: 3000 IE
     Route: 058
     Dates: start: 20150110, end: 20150121
  2. NOVALGIN [Concomitant]
     Active Substance: METAMIZOLE SODIUM
     Indication: PAIN
     Dosage: 30 DROPS
     Route: 048
     Dates: start: 20150111
  3. BEVACIZUMAB [Suspect]
     Active Substance: BEVACIZUMAB
     Route: 042
     Dates: end: 20150123
  4. DICLAC [Concomitant]
     Active Substance: DICLOFENAC POTASSIUM
     Indication: PAIN
     Route: 048
     Dates: start: 20150111
  5. DOXORUBICIN [Suspect]
     Active Substance: DOXORUBICIN
     Indication: OVARIAN CANCER
     Dosage: DATE OF LAST DOSE OF DOXORBICIN PRIOR TO EVENT: 20/NOV/2014
     Route: 042
     Dates: start: 20140704
  6. BEVACIZUMAB [Suspect]
     Active Substance: BEVACIZUMAB
     Indication: OVARIAN CANCER
     Dosage: DATE OF LAST DOSE OFBEVACIZUMAB PRIOR TO EVENT ONSET: 23/DEC/2014
     Route: 042
     Dates: start: 20140704, end: 20150113
  7. CARBOPLATIN. [Suspect]
     Active Substance: CARBOPLATIN
     Indication: OVARIAN CANCER
     Dosage: DATE OF LAST DOSE OF DOXORBICIN PRIOR TO EVENT: 20/NOV/2014
     Route: 042
     Dates: start: 20140704
  8. PANTOZOL [Concomitant]
     Active Substance: PANTOPRAZOLE SODIUM
     Indication: DYSPEPSIA
     Route: 048
     Dates: start: 20150111

REACTIONS (1)
  - Pleural effusion [Recovered/Resolved]

NARRATIVE: CASE EVENT DATE: 20150108
